FAERS Safety Report 4330960-9 (Version None)
Quarter: 2004Q1

REPORT INFORMATION
  Report Type: 
  Country: None (occurrence: None)
  Receive Date: 20040329
  Receipt Date: 20040318
  Transmission Date: 20041129
  Serious: Yes (Hospitalization)
  Sender: FDA-Public Use
  Company Number: US069975

PATIENT
  Age: 75 Year
  Sex: Female
  Weight: 65.8 kg

DRUGS (1)
  1. EPOGEN [Suspect]
     Indication: ANAEMIA OF MALIGNANT DISEASE
     Dosage: 26000 U, 1 IN 1 WEEKS, SC
     Route: 058
     Dates: start: 20040223

REACTIONS (3)
  - CHOLANGITIS [None]
  - JAUNDICE CHOLESTATIC [None]
  - PNEUMONIA [None]
